FAERS Safety Report 14752307 (Version 3)
Quarter: 2018Q2

REPORT INFORMATION
  Report Type: Spontaneous
  Country: US (occurrence: US)
  Receive Date: 20180412
  Receipt Date: 20180510
  Transmission Date: 20180711
  Serious: Yes (Hospitalization)
  Sender: FDA-Public Use
  Company Number: US-BIOGEN-2018BI00550742

PATIENT
  Age: 37 Year
  Sex: Male

DRUGS (2)
  1. TECFIDERA [Suspect]
     Active Substance: DIMETHYL FUMARATE
     Indication: MULTIPLE SCLEROSIS
     Dosage: STARTING DOSE
     Route: 048
     Dates: start: 20170205, end: 20170211
  2. TECFIDERA [Suspect]
     Active Substance: DIMETHYL FUMARATE
     Dosage: MAINTENANCE DOSE
     Route: 048
     Dates: start: 20170212

REACTIONS (14)
  - Fatigue [Recovered/Resolved]
  - Multiple sclerosis [Recovered/Resolved]
  - Muscular weakness [Unknown]
  - Mental disorder [Not Recovered/Not Resolved]
  - Blood cholesterol increased [Not Recovered/Not Resolved]
  - Somnolence [Recovered/Resolved]
  - Migraine [Not Recovered/Not Resolved]
  - Asthenia [Recovered/Resolved]
  - Lymphadenopathy [Recovered/Resolved]
  - Insomnia [Recovered/Resolved]
  - Brain oedema [Recovered/Resolved]
  - Energy increased [Not Recovered/Not Resolved]
  - Night sweats [Not Recovered/Not Resolved]
  - Multiple sclerosis relapse [Recovered/Resolved]

NARRATIVE: CASE EVENT DATE: 201803
